FAERS Safety Report 11055380 (Version 1)
Quarter: 2015Q2

REPORT INFORMATION
  Report Type: Spontaneous
  Country: US (occurrence: None)
  Receive Date: 20150421
  Receipt Date: 20150421
  Transmission Date: 20150821
  Serious: Yes (Disabling)
  Sender: FDA-Public Use
  Company Number: None

PATIENT
  Age: 72 Year
  Sex: Male
  Weight: 75.75 kg

DRUGS (7)
  1. ACETAMINOPHEN. [Concomitant]
     Active Substance: ACETAMINOPHEN
  2. VITAMIN C [Concomitant]
     Active Substance: ASCORBIC ACID
  3. ASPIRIN. [Concomitant]
     Active Substance: ASPIRIN
  4. LIPITOR [Suspect]
     Active Substance: ATORVASTATIN CALCIUM
     Indication: BLOOD CHOLESTEROL INCREASED
     Dosage: 1 PILL ONCE DAILY BY MOUTH
     Route: 048
     Dates: start: 19990928, end: 20150403
  5. METOPROLOL TARTRATE. [Concomitant]
     Active Substance: METOPROLOL TARTRATE
  6. CHONDROITIN [Concomitant]
     Active Substance: CHONDROITIN
  7. GLYCOSAMINE [Concomitant]

REACTIONS (7)
  - Gait disturbance [None]
  - Arthralgia [None]
  - Fatigue [None]
  - Musculoskeletal pain [None]
  - Balance disorder [None]
  - Myalgia [None]
  - Pain in extremity [None]

NARRATIVE: CASE EVENT DATE: 20150101
